FAERS Safety Report 8156980-4 (Version None)
Quarter: 2012Q1

REPORT INFORMATION
  Report Type: 
  Country: None (occurrence: None)
  Receive Date: 20120208
  Receipt Date: 20120127
  Transmission Date: 20120608
  Serious: Yes (Hospitalization, Other)
  Sender: FDA-Public Use
  Company Number: 2011027658

PATIENT
  Sex: Female
  Weight: 64 kg

DRUGS (12)
  1. HIZENTRA [Suspect]
  2. HIZENTRA [Suspect]
  3. MARSHMALLOW ROOT HERB (HERBAL PREPARATION) [Suspect]
     Dates: end: 20120102
  4. HIZENTRA [Suspect]
  5. HIZENTRA [Suspect]
  6. VANTIN [Concomitant]
  7. VICODIN [Suspect]
     Indication: BACK INJURY
     Dates: end: 20110618
  8. METOPROLOL TARTRATE [Concomitant]
  9. HIZENTRA [Suspect]
  10. ZYRTEC [Concomitant]
  11. HIZENTRA [Suspect]
     Indication: SELECTIVE IGG SUBCLASS DEFICIENCY
     Dosage: SEE IMAGE
     Route: 058
     Dates: start: 20111201
  12. HIZENTRA [Suspect]
     Indication: SELECTIVE IGG SUBCLASS DEFICIENCY
     Dosage: SEE IMAGE
     Route: 058
     Dates: start: 20110128

REACTIONS (21)
  - BLOOD SODIUM DECREASED [None]
  - NAUSEA [None]
  - CHILLS [None]
  - PRURITUS [None]
  - CYSTITIS [None]
  - PAIN IN EXTREMITY [None]
  - BODY TEMPERATURE INCREASED [None]
  - INFECTION [None]
  - TREMOR [None]
  - URINARY TRACT INFECTION [None]
  - BLOOD PRESSURE DECREASED [None]
  - HYPOTHALAMO-PITUITARY DISORDER [None]
  - VOMITING [None]
  - BLOOD GLUCOSE DECREASED [None]
  - DRUG INTERACTION [None]
  - MIGRAINE [None]
  - HEADACHE [None]
  - INCREASED UPPER AIRWAY SECRETION [None]
  - FLATULENCE [None]
  - MYALGIA [None]
  - FATIGUE [None]
